FAERS Safety Report 24062182 (Version 4)
Quarter: 2024Q3

REPORT INFORMATION
  Report Type: Spontaneous
  Country: US (occurrence: US)
  Receive Date: 20240708
  Receipt Date: 20240830
  Transmission Date: 20241017
  Serious: Yes (Life-Threatening, Hospitalization, Other)
  Sender: PFIZER
  Company Number: US-PFIZER INC-202400205503

PATIENT
  Age: 64 Year
  Sex: Female
  Weight: 71.9 kg

DRUGS (4)
  1. BUPIVACAINE HYDROCHLORIDE [Suspect]
     Active Substance: BUPIVACAINE HYDROCHLORIDE
     Indication: Spinal anaesthesia
     Dosage: 1.2 ML
     Dates: start: 20240627
  2. ROPIVACAINE HYDROCHLORIDE [Suspect]
     Active Substance: ROPIVACAINE HYDROCHLORIDE
     Indication: Nerve block
     Dosage: 20 ML
  3. EXPAREL [Suspect]
     Active Substance: BUPIVACAINE
     Dosage: UNK
  4. EXPAREL [Suspect]
     Active Substance: BUPIVACAINE
     Dosage: UNK

REACTIONS (6)
  - Muscle spasms [Unknown]
  - Cardiac arrest [Unknown]
  - Cardiac disorder [Unknown]
  - Seizure [Unknown]
  - Local anaesthetic systemic toxicity [Not Recovered/Not Resolved]
  - Dyskinesia [Unknown]

NARRATIVE: CASE EVENT DATE: 20240627
